FAERS Safety Report 18734199 (Version 1)
Quarter: 2021Q1

REPORT INFORMATION
  Report Type: Spontaneous
  Country: SI (occurrence: SI)
  Receive Date: 20210113
  Receipt Date: 20210113
  Transmission Date: 20210419
  Serious: Yes (Hospitalization, Other)
  Sender: FDA-Public Use
  Company Number: GXKR2009SI07257

PATIENT
  Age: 26 Year
  Sex: Female
  Weight: 60 kg

DRUGS (7)
  1. METHYLDOPA. [Suspect]
     Active Substance: METHYLDOPA
     Dosage: 500 MG, QID (INITIATED AT 29 WEEKS GESTATION)
     Route: 065
  2. IRBESARTAN. [Suspect]
     Active Substance: IRBESARTAN
     Indication: HYPERTENSION
     Dosage: 300 MG, QD
     Route: 065
  3. METHYLDOPA. [Suspect]
     Active Substance: METHYLDOPA
     Indication: PRE-ECLAMPSIA
     Dosage: 250 MG, TID (INITIATED AT 20 WEEKS GESTATION)
     Route: 065
  4. METHYLDOPA. [Suspect]
     Active Substance: METHYLDOPA
     Dosage: 500 MG, QD (4?500MG/D)
     Route: 065
  5. ACETYLSALICYLATE LYSINE [Suspect]
     Active Substance: ASPIRIN DL-LYSINE
     Indication: PRODUCT USED FOR UNKNOWN INDICATION
     Dosage: 100 MG, QD
     Route: 065
  6. METHYLDOPA. [Suspect]
     Active Substance: METHYLDOPA
     Indication: HYPERTENSION
     Dosage: 500 MG, QID (INITIATED AT 18 WEEKS GESTATION)
     Route: 065
  7. METHYLDOPA. [Suspect]
     Active Substance: METHYLDOPA
     Dosage: 250 MG, QD (3?250 MG/D)
     Route: 065

REACTIONS (3)
  - Pre-eclampsia [Recovered/Resolved]
  - Oligohydramnios [Recovered/Resolved]
  - Maternal exposure during pregnancy [Unknown]
